FAERS Safety Report 18432402 (Version 3)
Quarter: 2020Q4

REPORT INFORMATION
  Report Type: Spontaneous
  Country: US (occurrence: US)
  Receive Date: 20201027
  Receipt Date: 20201030
  Transmission Date: 20210114
  Serious: Yes (Other)
  Sender: FDA-Public Use
  Company Number: US-PFIZER INC-2020414742

PATIENT
  Age: 58 Year
  Sex: Female
  Weight: 102.06 kg

DRUGS (5)
  1. PROZAC [Suspect]
     Active Substance: FLUOXETINE HYDROCHLORIDE
     Dosage: UNK
  2. CYCLOBENZAPRINE. [Concomitant]
     Active Substance: CYCLOBENZAPRINE
     Indication: MUSCLE RELAXANT THERAPY
     Dosage: 10 MG, 3X/DAY [TAKE THREE TIMES DAILY]
     Route: 048
  3. ZOLOFT [Suspect]
     Active Substance: SERTRALINE HYDROCHLORIDE
     Indication: DEPRESSION
     Dosage: 100 MG
     Dates: start: 2002
  4. MELOXICAM. [Concomitant]
     Active Substance: MELOXICAM
     Indication: ANTIINFLAMMATORY THERAPY
     Dosage: 15 MG, DAILY [TAKE ONCE DAILY]
     Route: 048
  5. NORCO [Concomitant]
     Active Substance: ACETAMINOPHEN\HYDROCODONE BITARTRATE
     Indication: PAIN
     Dosage: UNK

REACTIONS (8)
  - Back injury [Unknown]
  - Panic disorder [Unknown]
  - Weight decreased [Unknown]
  - Craniocerebral injury [Unknown]
  - Post-traumatic stress disorder [Unknown]
  - Sluggishness [Unknown]
  - Memory impairment [Unknown]
  - Scoliosis [Unknown]
